FAERS Safety Report 18589084 (Version 1)
Quarter: 2020Q4

REPORT INFORMATION
  Report Type: Spontaneous
  Country: US (occurrence: US)
  Receive Date: 20201208
  Receipt Date: 20201208
  Transmission Date: 20210114
  Serious: Yes (Other)
  Sender: FDA-Public Use
  Company Number: US-GLAXOSMITHKLINE-US2020AMR238411

PATIENT
  Sex: Female
  Weight: 61.23 kg

DRUGS (5)
  1. ZOLOFT [Suspect]
     Active Substance: SERTRALINE HYDROCHLORIDE
     Indication: ANXIETY
     Dosage: 75 MG, QD(ONE AND A HALF OF THE 50 MG TABLETS PER DAY)
     Route: 048
  2. ZOLOFT [Suspect]
     Active Substance: SERTRALINE HYDROCHLORIDE
     Indication: DEPRESSION
  3. SERTRALINE [Suspect]
     Active Substance: SERTRALINE HYDROCHLORIDE
     Indication: ANXIETY
     Dosage: UNK
     Dates: start: 201901
  4. LEVOTHYROXINE. [Concomitant]
     Active Substance: LEVOTHYROXINE
     Indication: THYROXINE DECREASED
     Dosage: UNK
  5. LAMICTAL [Suspect]
     Active Substance: LAMOTRIGINE
     Indication: ANXIETY
     Dosage: UNK

REACTIONS (13)
  - Gastrointestinal disorder [Unknown]
  - Food intolerance [Unknown]
  - Product prescribing error [Unknown]
  - Drug ineffective [Unknown]
  - Product use in unapproved indication [Unknown]
  - Wrong technique in product usage process [Unknown]
  - Stevens-Johnson syndrome [Unknown]
  - Abdominal pain upper [Unknown]
  - Condition aggravated [Unknown]
  - Product substitution issue [Unknown]
  - Drug intolerance [Unknown]
  - Irritable bowel syndrome [Unknown]
  - Constipation [Unknown]
